FAERS Safety Report 8279701-3 (Version None)
Quarter: 2012Q2

REPORT INFORMATION
  Report Type: 
  Country: None (occurrence: None)
  Receive Date: 20120412
  Receipt Date: 20110922
  Transmission Date: 20120825
  Serious: No
  Sender: FDA-Public Use
  Company Number: US-ASTRAZENECA-2010SE20762

PATIENT
  Age: 52 Year
  Sex: Female

DRUGS (4)
  1. SEROQUEL [Concomitant]
  2. NEXIUM [Suspect]
     Route: 048
  3. CRESTOR [Concomitant]
  4. SYMBICORT [Concomitant]

REACTIONS (2)
  - GASTRIC DISORDER [None]
  - DYSPEPSIA [None]
